FAERS Safety Report 13831986 (Version 1)
Quarter: 2017Q3

REPORT INFORMATION
  Report Type: Spontaneous
  Country: US (occurrence: US)
  Receive Date: 20170803
  Receipt Date: 20170803
  Transmission Date: 20171127
  Serious: No
  Sender: FDA-Public Use
  Company Number: US-ROCHE-688856

PATIENT
  Age: 71 Year
  Sex: Female
  Weight: 59 kg

DRUGS (4)
  1. VERAPAMIL [Concomitant]
     Active Substance: VERAPAMIL HYDROCHLORIDE
     Route: 065
  2. CLONIDINE. [Concomitant]
     Active Substance: CLONIDINE
     Route: 065
  3. BENICAR [Concomitant]
     Active Substance: OLMESARTAN MEDOXOMIL
     Route: 065
  4. BONIVA [Suspect]
     Active Substance: IBANDRONATE SODIUM
     Indication: OSTEOPOROSIS
     Route: 048

REACTIONS (2)
  - Muscle strain [Unknown]
  - Influenza like illness [Unknown]

NARRATIVE: CASE EVENT DATE: 20100217
